FAERS Safety Report 18925089 (Version 1)
Quarter: 2021Q1

REPORT INFORMATION
  Report Type: Spontaneous
  Country: US (occurrence: US)
  Receive Date: 20210223
  Receipt Date: 20210223
  Transmission Date: 20210420
  Serious: Yes (Other)
  Sender: FDA-Public Use
  Company Number: US-CELLTRION INC.-2021US002119

PATIENT

DRUGS (4)
  1. TRASTUZUMAB (UNKNOWN) [Suspect]
     Active Substance: TRASTUZUMAB
     Indication: EPENDYMOMA
     Dosage: MEDIAN 4 CYCLES
     Route: 037
  2. TRASTUZUMAB (UNKNOWN) [Suspect]
     Active Substance: TRASTUZUMAB
     Indication: DISEASE RECURRENCE
  3. SARGRAMOSTIM [Suspect]
     Active Substance: SARGRAMOSTIM
     Indication: DISEASE RECURRENCE
  4. SARGRAMOSTIM [Suspect]
     Active Substance: SARGRAMOSTIM
     Indication: EPENDYMOMA
     Dosage: MEDIAN 4 CYCLES/THREE DAYS PRECEDING IT TRASTUZUMAB DOSES
     Route: 058

REACTIONS (4)
  - Product use issue [Unknown]
  - Ependymoma [Unknown]
  - Disease progression [Unknown]
  - Off label use [Unknown]
